FAERS Safety Report 10298975 (Version 1)
Quarter: 2014Q3

REPORT INFORMATION
  Report Type: Spontaneous
  Country: CN (occurrence: CN)
  Receive Date: 20140711
  Receipt Date: 20140711
  Transmission Date: 20150326
  Serious: Yes (Other)
  Sender: FDA-Public Use
  Company Number: CN-WATSON-2014-15333

PATIENT
  Age: 47 Year
  Sex: Female
  Weight: 60 kg

DRUGS (6)
  1. METOPROLOL SUCCINATE. [Suspect]
     Active Substance: METOPROLOL SUCCINATE
     Indication: VENTRICULAR TACHYCARDIA
     Dosage: 47.5 - 95 MG ONCE DAILY
     Route: 048
  2. ESMOLOL [Suspect]
     Active Substance: ESMOLOL HYDROCHLORIDE
     Dosage: 0.15 MG/KG/MIN; REPEATED ADMINISTRATION
  3. AMINOPHYLLINE (UNKNOWN) [Suspect]
     Active Substance: AMINOPHYLLINE
     Indication: OFF LABEL USE
  4. ESMOLOL [Suspect]
     Active Substance: ESMOLOL HYDROCHLORIDE
     Indication: VENTRICULAR ARRHYTHMIA
     Dosage: 0.05 MG/KG/MIN
     Route: 041
  5. AMINOPHYLLINE (UNKNOWN) [Suspect]
     Active Substance: AMINOPHYLLINE
     Indication: VENTRICULAR ARRHYTHMIA
     Dosage: 1 MG/KG CONTINUOUSLY, WITH TWO OR THREE TIMES OF EXTRA INTERMITTENT BOLUS INJECTIONS (0.1 G EACH TIM
     Route: 041
  6. ISOPRENALINE [Concomitant]
     Active Substance: ISOPROTERENOL HYDROCHLORIDE
     Indication: VENTRICULAR ARRHYTHMIA
     Dosage: 0.2 ?G/KG, PER HOUR, GRADUALLY INCREASED
     Route: 041

REACTIONS (3)
  - Ventricular arrhythmia [Unknown]
  - Off label use [Unknown]
  - Condition aggravated [Unknown]
